FAERS Safety Report 10085126 (Version 2)
Quarter: 2014Q3

REPORT INFORMATION
  Report Type: Spontaneous
  Country: US (occurrence: US)
  Receive Date: 20140417
  Receipt Date: 20140821
  Transmission Date: 20150326
  Serious: Yes (Other)
  Sender: FDA-Public Use
  Company Number: CHPA2014US005342

PATIENT
  Age: 74 Year
  Sex: Female

DRUGS (2)
  1. 4 WAY SALINE MOISTURIZING MIST [Suspect]
     Active Substance: SODIUM CHLORIDE
     Indication: HYPERSENSITIVITY
     Dosage: 2 TO 3 SPRAYS PER NOSTRIL
     Route: 045
  2. 4 WAY SALINE MOISTURIZING MIST [Suspect]
     Active Substance: SODIUM CHLORIDE
     Indication: OFF LABEL USE
     Dosage: 2 TO 3 SPRAYS PER NOSTRIL
     Route: 045

REACTIONS (2)
  - Heart rate increased [Recovered/Resolved]
  - Condition aggravated [Not Recovered/Not Resolved]
